FAERS Safety Report 24729656 (Version 1)
Quarter: 2024Q4

REPORT INFORMATION
  Report Type: Spontaneous
  Country: IT (occurrence: IT)
  Receive Date: 20241213
  Receipt Date: 20241213
  Transmission Date: 20250115
  Serious: Yes (Hospitalization)
  Sender: NOVITIUM PHARMA
  Company Number: IT-NOVITIUMPHARMA-2024ITNVP02817

PATIENT
  Age: 62 Year
  Sex: Male

DRUGS (2)
  1. CARBAMAZEPINE [Suspect]
     Active Substance: CARBAMAZEPINE
     Indication: Trigeminal neuralgia
  2. TAPENTADOL [Concomitant]
     Active Substance: TAPENTADOL
     Indication: Trigeminal neuralgia

REACTIONS (1)
  - Rebound effect [Unknown]
